FAERS Safety Report 21657336 (Version 1)
Quarter: 2022Q4

REPORT INFORMATION
  Report Type: Report from Study
  Country: US (occurrence: US)
  Receive Date: 20221129
  Receipt Date: 20221129
  Transmission Date: 20230113
  Serious: Yes (Other)
  Sender: FDA-Public Use
  Company Number: US-SA-SAC20221125000004

PATIENT
  Age: 57 Year
  Sex: Female

DRUGS (16)
  1. BELUMOSUDIL MESYLATE [Suspect]
     Active Substance: BELUMOSUDIL MESYLATE
     Indication: Graft versus host disease
     Dosage: 200 MG, QD
     Route: 048
     Dates: start: 20220319
  2. SIMVASTATIN [Concomitant]
     Active Substance: SIMVASTATIN
     Indication: Blood cholesterol increased
     Dosage: 40 MG, QD
  3. CEFDINIR [Concomitant]
     Active Substance: CEFDINIR
     Dosage: UNK
  4. ASPIRIN [Concomitant]
     Active Substance: ASPIRIN
     Dosage: 81 MG
  5. ACYCLOVIR [Concomitant]
     Active Substance: ACYCLOVIR
     Dosage: 400 MG, BID
  6. AZITHROMYCIN [Concomitant]
     Active Substance: AZITHROMYCIN
     Dosage: 250 MG
  7. FLUCONAZOLE [Concomitant]
     Active Substance: FLUCONAZOLE
     Dosage: 100 MG, BID
  8. PROMETHAZINE [Concomitant]
     Active Substance: PROMETHAZINE HYDROCHLORIDE
     Dosage: 25 MG, PRN
  9. ADVAIR HFA [Concomitant]
     Active Substance: FLUTICASONE PROPIONATE\SALMETEROL XINAFOATE
     Dosage: UNK
  10. SPIRIVA [Concomitant]
     Active Substance: TIOTROPIUM BROMIDE MONOHYDRATE
     Dosage: UNK
  11. ALBUTEROL [Concomitant]
     Active Substance: ALBUTEROL
     Dosage: UNK
  12. FOLIC ACID [Concomitant]
     Active Substance: FOLIC ACID
     Dosage: 1 MG, QD
  13. VITAMIN D3 [Concomitant]
     Active Substance: CHOLECALCIFEROL
     Dosage: 1800 UG, QD
  14. TACROLIMUS [Concomitant]
     Active Substance: TACROLIMUS
     Dosage: 0.5, QD
  15. ELIQUIS [Concomitant]
     Active Substance: APIXABAN
     Dosage: 5 MG, BID
  16. VITAMINS NOS [Concomitant]
     Active Substance: VITAMINS
     Dosage: UNK, QD

REACTIONS (16)
  - Graft versus host disease [Unknown]
  - Weight decreased [Unknown]
  - Bronchitis [Unknown]
  - Chest discomfort [Unknown]
  - Arthralgia [Unknown]
  - Dyspnoea [Unknown]
  - Decreased appetite [Not Recovered/Not Resolved]
  - Skin disorder [Unknown]
  - Dry mouth [Not Recovered/Not Resolved]
  - Vision blurred [Not Recovered/Not Resolved]
  - Skin discolouration [Not Recovered/Not Resolved]
  - Hypotension [Recovering/Resolving]
  - Limb discomfort [Unknown]
  - Blood cholesterol increased [Unknown]
  - Constipation [Recovered/Resolved]
  - Abdominal pain upper [Recovered/Resolved]
